FAERS Safety Report 5958571-X (Version None)
Quarter: 2008Q4

REPORT INFORMATION
  Report Type: 
  Country: None (occurrence: None)
  Receive Date: 20081119
  Receipt Date: 20081110
  Transmission Date: 20090506
  Serious: Yes (Hospitalization)
  Sender: FDA-Public Use
  Company Number: TW-WYE-H06869908

PATIENT
  Age: 79 Year
  Sex: Male

DRUGS (1)
  1. CORDARONE [Suspect]
     Route: 048
     Dates: start: 20060101, end: 20060101

REACTIONS (4)
  - HYPOTHYROIDISM [None]
  - LUNG INFECTION PSEUDOMONAL [None]
  - MYXOEDEMA COMA [None]
  - PLEURAL EFFUSION [None]
